FAERS Safety Report 6667813-7 (Version None)
Quarter: 2010Q2

REPORT INFORMATION
  Report Type: 
  Country: None (occurrence: None)
  Receive Date: 20100405
  Receipt Date: 20100305
  Transmission Date: 20101027
  Serious: No
  Sender: FDA-Public Use
  Company Number: US-BAYER-201012848BCC

PATIENT
  Age: 68 Year
  Sex: Female
  Weight: 77 kg

DRUGS (7)
  1. ALEVE (CAPLET) [Suspect]
     Indication: BACK PAIN
     Dosage: TOTAL DAILY DOSE: 220 MG  UNIT DOSE: 220 MG
     Route: 048
     Dates: start: 20100201, end: 20100201
  2. ALEVE (CAPLET) [Suspect]
     Dosage: TOTAL DAILY DOSE: 220 MG  UNIT DOSE: 220 MG
     Route: 048
     Dates: start: 20100305
  3. METOPROLOL SUCCINATE [Concomitant]
     Route: 065
  4. BENICAR [Concomitant]
     Route: 065
  5. TYLENOL PM [Concomitant]
     Route: 065
  6. OMEPRAZOLE [Concomitant]
     Route: 065
  7. FAMOTIDINE [Concomitant]
     Route: 065

REACTIONS (4)
  - DIZZINESS [None]
  - DRY MOUTH [None]
  - EAR DISCOMFORT [None]
  - HEADACHE [None]
